FAERS Safety Report 5268345-3 (Version None)
Quarter: 2007Q1

REPORT INFORMATION
  Report Type: 
  Country: None (occurrence: None)
  Receive Date: 20070315
  Receipt Date: 20070315
  Transmission Date: 20070707
  Serious: Yes (Other)
  Sender: FDA-Public Use
  Company Number: None

PATIENT
  Sex: Female
  Weight: 65.7716 kg

DRUGS (2)
  1. AMBIEN CR [Suspect]
     Indication: INSOMNIA
     Dosage: 1 AT BEDTIME NIGHTLY PO
     Route: 048
     Dates: start: 20070309, end: 20070314
  2. AMBIEN [Suspect]
     Indication: INSOMNIA
     Dosage: 1 AT BEDTIME NIGHTLY PO
     Route: 048

REACTIONS (5)
  - ABNORMAL SLEEP-RELATED EVENT [None]
  - AMNESIA [None]
  - CONTUSION [None]
  - FATIGUE [None]
  - FOOD CRAVING [None]
